FAERS Safety Report 24544820 (Version 1)
Quarter: 2024Q4

REPORT INFORMATION
  Report Type: Spontaneous
  Country: CN (occurrence: CN)
  Receive Date: 20241024
  Receipt Date: 20241024
  Transmission Date: 20250115
  Serious: Yes (Other)
  Sender: BAXTER
  Company Number: None

PATIENT
  Age: 14 Year
  Sex: Male
  Weight: 57.9 kg

DRUGS (1)
  1. MANNITOL [Suspect]
     Active Substance: MANNITOL
     Indication: Post procedural swelling
     Dosage: 20 GRAMS, ONCE IN ONE DAY (DOSAGE FORM: INJECTION SOLUTION)
     Route: 041
     Dates: start: 20241009, end: 20241010

REACTIONS (2)
  - Rash [Recovering/Resolving]
  - Urticaria [Recovering/Resolving]

NARRATIVE: CASE EVENT DATE: 20241010
